FAERS Safety Report 11659215 (Version 6)
Quarter: 2017Q4

REPORT INFORMATION
  Report Type: Spontaneous
  Country: US (occurrence: US)
  Receive Date: 20151026
  Receipt Date: 20171120
  Transmission Date: 20180320
  Serious: Yes (Hospitalization, Other)
  Sender: FDA-Public Use
  Company Number: US-PFIZER INC-2015352195

PATIENT
  Age: 70 Year
  Sex: Male
  Weight: 96.16 kg

DRUGS (21)
  1. TAMSULOSIN HCL [Concomitant]
     Active Substance: TAMSULOSIN
     Indication: MICTURITION DISORDER
     Dosage: 0.4 MG, 1X/DAY
  2. LYRICA [Suspect]
     Active Substance: PREGABALIN
     Indication: BACK DISORDER
     Dosage: 100 MG, UNK
  3. CHLORDIAZEPOXIDE HYDROCHLORIDE, CLIDINIUM BROMIDE [Concomitant]
     Indication: IRRITABLE BOWEL SYNDROME
     Dosage: ONE TO TWO TABLETS ONCE A DAY ; TAKES ONE IN THE EVENING AND ONE IN THE MORNING
     Dates: start: 1974
  4. ASPIRIN. [Concomitant]
     Active Substance: ASPIRIN
     Indication: CARDIAC DISORDER
  5. LYRICA [Suspect]
     Active Substance: PREGABALIN
     Dosage: 6 DF, DAILY
     Dates: start: 201709
  6. OXYCODONE/ACETAMINOPHEN [Suspect]
     Active Substance: ACETAMINOPHEN\OXYCODONE HYDROCHLORIDE
     Indication: PAIN
     Dosage: [ACETAMINOPHEN 325MG]/[ OXYCODONE HYDROCHLORIDE 5MG]
     Dates: end: 20151015
  7. LYRICA [Suspect]
     Active Substance: PREGABALIN
     Dosage: 75 MG, UNK
  8. CORTISONE [Suspect]
     Active Substance: CORTISONE\HYDROCORTISONE
     Dosage: UNK
     Dates: start: 20151015
  9. LANSOPRAZOLE. [Concomitant]
     Active Substance: LANSOPRAZOLE
     Indication: GASTROOESOPHAGEAL REFLUX DISEASE
     Dosage: 30 MG, 1X/DAY
  10. ASPIRIN. [Concomitant]
     Active Substance: ASPIRIN
     Indication: ANTICOAGULANT THERAPY
     Dosage: 81 MG, 1X/DAY
  11. OXYCODONE/ACETAMINOPHEN [Suspect]
     Active Substance: ACETAMINOPHEN\OXYCODONE HYDROCHLORIDE
     Dosage: [ACETAMINOPHEN 325MG]/[ OXYCODONE HYDROCHLORIDE 10MG]
  12. LYRICA [Suspect]
     Active Substance: PREGABALIN
     Indication: SPINAL DISORDER
     Dosage: 150 MG, 2X/DAY (75MG CAPSULES, TWO CAPSULES BY MOUTH TWICE A DAY)
     Route: 048
  13. LYRICA [Suspect]
     Active Substance: PREGABALIN
     Dosage: 100 MG, 2X/DAY (100MG IN MORNING AND 100MG IN EVENING)
  14. LYRICA [Suspect]
     Active Substance: PREGABALIN
     Dosage: 50 MG, UNK
  15. LYRICA [Suspect]
     Active Substance: PREGABALIN
     Dosage: 4 DF, DAILY (4 PILLS A DAY)
  16. METOPROLOL SUCCINATE. [Concomitant]
     Active Substance: METOPROLOL SUCCINATE
     Indication: BLOOD PRESSURE MEASUREMENT
     Dosage: 25 MG, 1X/DAY
  17. LYRICA [Suspect]
     Active Substance: PREGABALIN
     Indication: NEURALGIA
     Dosage: 150 MG, 2X/DAY (75MG CAPSULES/150MG IN MORNING AND 150MG IN EVENING)
     Dates: start: 2015
  18. WELCHOL [Concomitant]
     Active Substance: COLESEVELAM HYDROCHLORIDE
     Indication: CHOLECYSTECTOMY
     Dosage: 625 MG, 2X/DAY
     Dates: start: 201703
  19. LYRICA [Suspect]
     Active Substance: PREGABALIN
     Dosage: 50 MG, UNK
  20. HYOSCYAMINE. [Concomitant]
     Active Substance: HYOSCYAMINE
     Indication: IRRITABLE BOWEL SYNDROME
     Dosage: 0.125 MG, TAKING IT BEFORE FOOD OR EVERY 4 HOURS AS NEEDED
  21. HYOSCYAMINE SULFATE. [Concomitant]
     Active Substance: HYOSCYAMINE SULFATE
     Indication: IRRITABLE BOWEL SYNDROME
     Dosage: 0.125 MG, UNK
     Dates: start: 201611

REACTIONS (14)
  - Dry mouth [Unknown]
  - Drug effect incomplete [Unknown]
  - Pain in extremity [Not Recovered/Not Resolved]
  - Cyst [Unknown]
  - Pre-existing condition improved [Unknown]
  - Nephrolithiasis [Unknown]
  - Spinal disorder [Unknown]
  - Pain in extremity [Unknown]
  - Body height decreased [Unknown]
  - Therapeutic response unexpected [Unknown]
  - Gait disturbance [Recovered/Resolved]
  - Arthropathy [Unknown]
  - Somnolence [Unknown]
  - Intentional underdose [Unknown]

NARRATIVE: CASE EVENT DATE: 201603
